FAERS Safety Report 14111128 (Version 1)
Quarter: 2017Q4

REPORT INFORMATION
  Report Type: Spontaneous
  Country: CA (occurrence: CA)
  Receive Date: 20171020
  Receipt Date: 20171020
  Transmission Date: 20180321
  Serious: Yes (Hospitalization, Other)
  Sender: FDA-Public Use
  Company Number: CA-PFIZER INC-2017444714

PATIENT
  Age: 31 Year
  Sex: Male

DRUGS (11)
  1. MESALAMINE. [Concomitant]
     Active Substance: MESALAMINE
     Dosage: 1 G, DAILY (AT BED TIME)
     Dates: start: 20170918
  2. TRAMADOL. [Concomitant]
     Active Substance: TRAMADOL
     Dosage: UNK UNK, AS NEEDED
  3. MEZAVANT [Concomitant]
     Active Substance: MESALAMINE
     Dosage: 4.8 G, DAILY
     Dates: end: 20171010
  4. METRONIDAZOLE. [Suspect]
     Active Substance: METRONIDAZOLE
     Dosage: 500 MG, 3X/DAY
  5. MESALAMINE. [Concomitant]
     Active Substance: MESALAMINE
     Dosage: 4.8 MG, DAILY (AT BED TIME)
     Route: 054
  6. CHOLESTYRAMINE. [Concomitant]
     Active Substance: CHOLESTYRAMINE
     Dosage: 4 G, AS NEEDED
  7. PREDNISONE. [Concomitant]
     Active Substance: PREDNISONE
     Dosage: UNK
     Dates: end: 201605
  8. PREDNISONE. [Concomitant]
     Active Substance: PREDNISONE
     Dosage: 40 MG, UNK
  9. GABAPENTIN. [Suspect]
     Active Substance: GABAPENTIN
     Dosage: 300 MG, 3X/DAY
  10. TYLENOL WITH CODEINE [Concomitant]
     Active Substance: ACETAMINOPHEN\CODEINE PHOSPHATE
  11. TRAMACET [Concomitant]
     Active Substance: ACETAMINOPHEN\TRAMADOL
     Dosage: AS NEEDED

REACTIONS (7)
  - Weight decreased [Unknown]
  - Fatigue [Unknown]
  - Appendicitis [Unknown]
  - Abdominal pain [Unknown]
  - Decreased appetite [Unknown]
  - Anaemia [Unknown]
  - Muscle spasms [Unknown]

NARRATIVE: CASE EVENT DATE: 2017
